FAERS Safety Report 10572933 (Version 1)
Quarter: 2014Q4

REPORT INFORMATION
  Report Type: Spontaneous
  Country: FR (occurrence: None)
  Receive Date: 20141106
  Receipt Date: 20141106
  Transmission Date: 20150529
  Serious: Yes (Life-Threatening)
  Sender: FDA-Public Use
  Company Number: CLINIGEN-003437

PATIENT
  Age: 67 Year
  Sex: Female
  Weight: 103 kg

DRUGS (2)
  1. FOSCAVIR [Suspect]
     Active Substance: FOSCARNET SODIUM
     Indication: MENINGORADICULITIS
     Dosage: (NOT OTHERWISE SPECIFIED)
     Route: 042
     Dates: start: 20141001
  2. FOSCAVIR [Suspect]
     Active Substance: FOSCARNET SODIUM
     Indication: MYELITIS
     Dosage: (NOT OTHERWISE SPECIFIED)
     Route: 042
     Dates: start: 20141001

REACTIONS (5)
  - Hypomagnesaemia [None]
  - Cardiac arrest [None]
  - Hypocalcaemia [None]
  - Blood disorder [None]
  - Ventricular tachycardia [None]

NARRATIVE: CASE EVENT DATE: 20141008
